FAERS Safety Report 9308008 (Version 1)
Quarter: 2013Q2

REPORT INFORMATION
  Report Type: Spontaneous
  Country: US (occurrence: US)
  Receive Date: 20130524
  Receipt Date: 20130524
  Transmission Date: 20140414
  Serious: No
  Sender: FDA-Public Use
  Company Number: US-GLAXOSMITHKLINE-A0986565A

PATIENT
  Age: 57 Year
  Sex: Female

DRUGS (6)
  1. BACTROBAN [Suspect]
     Indication: SKIN LESION
     Dosage: 1APP AT NIGHT
     Route: 061
     Dates: start: 1997
  2. LEVOTHYROXINE [Concomitant]
  3. VITAMIN [Concomitant]
  4. PEPCID [Concomitant]
  5. ESTRADIOL [Concomitant]
  6. AMOXICILLIN [Concomitant]

REACTIONS (1)
  - Drug effect decreased [Not Recovered/Not Resolved]
